FAERS Safety Report 9335166 (Version 1)
Quarter: 2013Q2

REPORT INFORMATION
  Report Type: Other
  Country: DE (occurrence: DE)
  Receive Date: 20130606
  Receipt Date: 20130606
  Transmission Date: 20140414
  Serious: Yes (Other)
  Sender: FDA-Public Use
  Company Number: DE-WATSON-2013-10535

PATIENT
  Sex: Female
  Weight: 92 kg

DRUGS (2)
  1. SERTRALINE HYDROCHLORIDE (UNKNOWN) [Suspect]
     Indication: PANIC DISORDER
     Dosage: 50 MG, DAILY
     Route: 048
     Dates: start: 20120514
  2. FEMIBION [Concomitant]
     Indication: PROPHYLAXIS OF NEURAL TUBE DEFECT
     Dosage: 0.4 MG, DAILY
     Route: 065

REACTIONS (3)
  - Stillbirth [Recovered/Resolved]
  - Umbilical cord abnormality [Recovered/Resolved]
  - Maternal exposure during pregnancy [Recovered/Resolved]
